FAERS Safety Report 10205306 (Version 1)
Quarter: 2014Q2

REPORT INFORMATION
  Report Type: Spontaneous
  Country: US (occurrence: US)
  Receive Date: 20140529
  Receipt Date: 20140529
  Transmission Date: 20141212
  Serious: No
  Sender: FDA-Public Use
  Company Number: US-SA-2014SA039226

PATIENT
  Age: 57 Year
  Sex: Female

DRUGS (6)
  1. SOLOSTAR [Suspect]
     Indication: DEVICE THERAPY
     Dates: start: 201309
  2. SOLOSTAR [Suspect]
     Indication: DEVICE THERAPY
     Dates: start: 201309
  3. LANTUS SOLOSTAR [Suspect]
     Indication: TYPE 2 DIABETES MELLITUS
     Dosage: DOSE:60 UNIT(S)
     Route: 065
     Dates: start: 201309
  4. LANTUS SOLOSTAR [Suspect]
     Indication: TYPE 2 DIABETES MELLITUS
     Dosage: DOSE:60 UNIT(S)
     Route: 065
     Dates: start: 201309
  5. LANTUS [Concomitant]
  6. LANTUS [Concomitant]

REACTIONS (3)
  - Blood glucose increased [Unknown]
  - Glycosylated haemoglobin increased [Unknown]
  - Drug administration error [Unknown]
